FAERS Safety Report 9153530 (Version 2)
Quarter: 2013Q2

REPORT INFORMATION
  Report Type: Spontaneous
  Country: AU (occurrence: None)
  Receive Date: 20130204
  Receipt Date: 20130531
  Transmission Date: 20140414
  Serious: Yes (Hospitalization, Other)
  Sender: FDA-Public Use
  Company Number: 2013000011

PATIENT
  Age: 61 Year
  Sex: Female

DRUGS (6)
  1. ACEON [Suspect]
     Indication: HYPERTENSION
     Dates: start: 201208, end: 201212
  2. LITHICARB [Suspect]
     Indication: BIPOLAR DISORDER
     Route: 048
     Dates: end: 201212
  3. QUILONUM [Suspect]
     Indication: BIPOLAR DISORDER
     Route: 048
     Dates: end: 201212
  4. ABILIFY (ARIPIPRAZOLE) [Suspect]
     Indication: BIPOLAR DISORDER
     Route: 048
  5. NORVASC [Concomitant]
  6. CLONAZEPAM [Concomitant]

REACTIONS (10)
  - Diabetes insipidus [None]
  - Drug interaction [None]
  - Neuroleptic malignant syndrome [None]
  - Blood pressure fluctuation [None]
  - Metabolic syndrome [None]
  - Body temperature fluctuation [None]
  - Rhinorrhoea [None]
  - Visual impairment [None]
  - Amnesia [None]
  - Toxicity to various agents [None]
